FAERS Safety Report 8024586-3 (Version None)
Quarter: 2012Q1

REPORT INFORMATION
  Report Type: 
  Country: None (occurrence: None)
  Receive Date: 20120103
  Receipt Date: 20111219
  Transmission Date: 20120608
  Serious: Yes (Hospitalization)
  Sender: FDA-Public Use
  Company Number: 1000026526

PATIENT
  Age: 91 Year
  Sex: Female

DRUGS (3)
  1. ZESTORETIC (HYDROCHLOROTHIAZIDE, LISINOPRIL) (HYDROCHLOROTHIAZIDE, LIS [Concomitant]
  2. MODOPAR (BENSERAZIDE HYDROCHLORIDE, LEVAPODA) [Suspect]
     Dosage: 150/37.5 MG (1 IN 1 D), ORAL
     Route: 048
     Dates: start: 20111110, end: 20111119
  3. NEBIVOLOL HCL [Suspect]
     Dosage: 5 MG (5 MG, 1 IN 1 D), ORAL
     Route: 048
     Dates: end: 20111119

REACTIONS (6)
  - HYPERTENSION [None]
  - GAIT DISTURBANCE [None]
  - MALAISE [None]
  - CEREBRAL ATROPHY [None]
  - BRAIN SCAN ABNORMAL [None]
  - FALL [None]
